FAERS Safety Report 5513140-0 (Version None)
Quarter: 2007Q4

REPORT INFORMATION
  Report Type: 
  Country: None (occurrence: None)
  Receive Date: 20071112
  Receipt Date: 20071105
  Transmission Date: 20080405
  Serious: Yes (Death, Life-Threatening, Hospitalization, Disabling)
  Sender: FDA-Public Use
  Company Number: US-GENENTECH-249817

PATIENT
  Sex: Male

DRUGS (1)
  1. BEVACIZUMAB [Suspect]
     Indication: DRUG USE FOR UNKNOWN INDICATION
     Dosage: 5 MG/KG, Q2W
     Route: 042
     Dates: start: 20070403, end: 20070920

REACTIONS (5)
  - APNOEIC ATTACK [None]
  - CAECITIS [None]
  - CARDIO-RESPIRATORY ARREST [None]
  - ELECTROENCEPHALOGRAM ABNORMAL [None]
  - UNRESPONSIVE TO STIMULI [None]
